FAERS Safety Report 20181552 (Version 1)
Quarter: 2021Q4

REPORT INFORMATION
  Report Type: Spontaneous
  Country: US (occurrence: None)
  Receive Date: 20211213
  Receipt Date: 20211213
  Transmission Date: 20220304
  Serious: No
  Sender: FDA-Public Use
  Company Number: None

PATIENT
  Age: 59 Year
  Sex: Female
  Weight: 59 kg

DRUGS (8)
  1. OXALIPLATIN [Suspect]
     Active Substance: OXALIPLATIN
     Indication: Colon cancer
     Dosage: FREQUENCY : EVERY OTHER WEEK;?
     Route: 042
     Dates: start: 20211108
  2. BEVACIZUMAB-AWWB [Suspect]
     Active Substance: BEVACIZUMAB-AWWB
     Indication: Colon cancer
     Dosage: FREQUENCY : EVERY OTHER WEEK;?
     Route: 042
     Dates: start: 20211108
  3. LEUCOVORIN [Concomitant]
     Active Substance: LEUCOVORIN
     Dates: start: 20211108
  4. FLUOROURACIL [Concomitant]
     Active Substance: FLUOROURACIL
     Dates: start: 20211108
  5. PALONOSETRON [Concomitant]
     Active Substance: PALONOSETRON
     Dates: start: 20211108
  6. DEXAMETHASONE [Concomitant]
     Active Substance: DEXAMETHASONE
     Dates: start: 20211108
  7. APREPITANT [Concomitant]
     Active Substance: APREPITANT
     Dates: start: 20211122
  8. PEGFILGRASTIM [Concomitant]
     Active Substance: PEGFILGRASTIM
     Dates: start: 20211124

REACTIONS (4)
  - Throat irritation [None]
  - Throat tightness [None]
  - Lip swelling [None]
  - Migraine [None]

NARRATIVE: CASE EVENT DATE: 20211206
